FAERS Safety Report 7433227-5 (Version None)
Quarter: 2011Q2

REPORT INFORMATION
  Report Type: 
  Country: None (occurrence: None)
  Receive Date: 20110415
  Receipt Date: 20110329
  Transmission Date: 20111010
  Serious: Yes (Hospitalization)
  Sender: FDA-Public Use
  Company Number: 2011-1058

PATIENT
  Sex: Male

DRUGS (1)
  1. APO-GO AMPOULES(APO-GO)(APOMORPHINE HYDROCHLORIDE)(APOMORPHINE HYDROCH [Suspect]
     Indication: PRODUCT USED FOR UNKNOWN INDICATION

REACTIONS (1)
  - LIBIDO INCREASED [None]
